FAERS Safety Report 12908281 (Version 1)
Quarter: 2016Q4

REPORT INFORMATION
  Report Type: Spontaneous
  Country: US (occurrence: US)
  Receive Date: 20161103
  Receipt Date: 20161103
  Transmission Date: 20170207
  Serious: Yes (Hospitalization, Other)
  Sender: FDA-Public Use
  Company Number: US-MEDA-95090013

PATIENT
  Age: 15 Year
  Sex: Female
  Weight: 86 kg

DRUGS (8)
  1. NAFCILLIN [Suspect]
     Active Substance: NAFCILLIN\NAFCILLIN SODIUM
     Dates: start: 19940802
  2. FELBATOL [Suspect]
     Active Substance: FELBAMATE
     Indication: COMPLEX PARTIAL SEIZURES
     Dosage: 400 MG BID
     Route: 048
     Dates: start: 19940624, end: 19940725
  3. ROCEPHIN [Suspect]
     Active Substance: CEFTRIAXONE SODIUM
     Dates: start: 19940801
  4. PHENERGAN [Suspect]
     Active Substance: PROMETHAZINE HYDROCHLORIDE
     Indication: NAUSEA
     Dates: start: 19940729
  5. DOXYCYCLINE. [Suspect]
     Active Substance: DOXYCYCLINE
     Dates: start: 19940802
  6. CLAFORAN [Suspect]
     Active Substance: CEFOTAXIME SODIUM
     Dates: start: 19940802
  7. GENTAMICIN. [Suspect]
     Active Substance: GENTAMICIN
     Dates: start: 19940802
  8. CECLOR [Suspect]
     Active Substance: CEFACLOR
     Dates: start: 19940729, end: 19940730

REACTIONS (11)
  - Staphylococcal pharyngitis [Recovered/Resolved]
  - Renal failure [Recovered/Resolved]
  - Loss of consciousness [Recovered/Resolved]
  - Insomnia [Recovered/Resolved]
  - Seizure [Recovered/Resolved]
  - Somnolence [Recovered/Resolved]
  - Pneumonia streptococcal [Recovered/Resolved]
  - Feeding disorder [Recovered/Resolved]
  - Hypersensitivity [Recovered/Resolved]
  - Hepatic failure [Recovered/Resolved]
  - Nausea [Recovered/Resolved]

NARRATIVE: CASE EVENT DATE: 1994
